FAERS Safety Report 5727170-7 (Version None)
Quarter: 2008Q2

REPORT INFORMATION
  Report Type: 
  Country: None (occurrence: None)
  Receive Date: 20080505
  Receipt Date: 20080428
  Transmission Date: 20081010
  Serious: Yes (Death, Other)
  Sender: FDA-Public Use
  Company Number: JP-BRISTOL-MYERS SQUIBB COMPANY-14167068

PATIENT
  Age: 54 Year
  Sex: Male

DRUGS (4)
  1. PARAPLATIN [Suspect]
     Indication: SMALL INTESTINE CARCINOMA
     Route: 041
  2. CISPLATIN [Suspect]
     Indication: SMALL INTESTINE CARCINOMA
  3. ETOPOSIDE [Suspect]
     Indication: SMALL INTESTINE CARCINOMA
  4. IRINOTECAN HCL [Suspect]
     Indication: SMALL INTESTINE CARCINOMA
     Route: 042

REACTIONS (2)
  - MULTI-ORGAN FAILURE [None]
  - PANCYTOPENIA [None]
